FAERS Safety Report 12956939 (Version 1)
Quarter: 2016Q4

REPORT INFORMATION
  Report Type: Spontaneous
  Country: US (occurrence: US)
  Receive Date: 20161118
  Receipt Date: 20161118
  Transmission Date: 20170207
  Serious: Yes (Other)
  Sender: FDA-Public Use
  Company Number: US-ELI_LILLY_AND_COMPANY-US201607012975

PATIENT

DRUGS (3)
  1. CYMBALTA [Suspect]
     Active Substance: DULOXETINE HYDROCHLORIDE
     Dosage: 30 MG, QD
     Route: 048
  2. CYMBALTA [Suspect]
     Active Substance: DULOXETINE HYDROCHLORIDE
     Indication: PRODUCT USED FOR UNKNOWN INDICATION
     Dosage: 60 MG, QD
     Route: 048
     Dates: start: 20120914
  3. CYMBALTA [Suspect]
     Active Substance: DULOXETINE HYDROCHLORIDE
     Dosage: 15 MG, QD
     Route: 048
     Dates: end: 201412

REACTIONS (23)
  - Vomiting [Recovered/Resolved]
  - Irritability [Unknown]
  - Agitation [Unknown]
  - Headache [Unknown]
  - Paraesthesia [Unknown]
  - Dysphoria [Unknown]
  - Dizziness [Unknown]
  - Arthralgia [Unknown]
  - Hyperhidrosis [Recovered/Resolved]
  - Nausea [Unknown]
  - Fatigue [Unknown]
  - Confusional state [Unknown]
  - Nightmare [Recovered/Resolved]
  - Suicidal ideation [Unknown]
  - Drug withdrawal syndrome [Unknown]
  - Hypomania [Unknown]
  - Paranoia [Unknown]
  - Anxiety [Unknown]
  - Affect lability [Unknown]
  - Insomnia [Unknown]
  - Respiration abnormal [Unknown]
  - Sensory disturbance [Unknown]
  - Diarrhoea [Unknown]
